FAERS Safety Report 11637823 (Version 4)
Quarter: 2016Q1

REPORT INFORMATION
  Report Type: Spontaneous
  Country: JP (occurrence: JP)
  Receive Date: 20151016
  Receipt Date: 20160307
  Transmission Date: 20160525
  Serious: Yes (Hospitalization)
  Sender: FDA-Public Use
  Company Number: JP-MALLINCKRODT-T201504777

PATIENT
  Age: 45 Year
  Sex: Male
  Weight: 63 kg

DRUGS (9)
  1. MICARDIS [Concomitant]
     Active Substance: TELMISARTAN
     Indication: HYPERTENSION
     Dosage: 20 MG
     Route: 048
     Dates: start: 20150920, end: 20150923
  2. BIO-THREE [Concomitant]
     Active Substance: HERBALS
     Dosage: 3G;UNK
     Route: 048
     Dates: start: 20150910
  3. OSPAIN [Concomitant]
     Active Substance: ETODOLAC
     Dosage: 400MG;UNK
     Route: 048
     Dates: start: 20150922, end: 20150923
  4. ROPION [Concomitant]
     Active Substance: FLURBIPROFEN AXETIL
     Dosage: 100MG
     Route: 042
     Dates: start: 20150927, end: 20151001
  5. NEXIUM [Concomitant]
     Active Substance: ESOMEPRAZOLE MAGNESIUM
     Dosage: 20MG;UNK
     Route: 048
     Dates: start: 20150922, end: 20150923
  6. ALBUMIN TANNATE [Concomitant]
     Active Substance: ALBUMIN BOVINE\TANNIC ACID
     Dosage: 3G;UNK
     Route: 065
     Dates: start: 20150910, end: 20151001
  7. OFIRMEV [Suspect]
     Active Substance: ACETAMINOPHEN
     Indication: ANTIPYRESIS
     Dosage: 2G (2/1 DAY)
     Route: 042
     Dates: start: 20150926, end: 20151001
  8. AMLODIPINE [Concomitant]
     Active Substance: AMLODIPINE BESYLATE
     Dosage: 5MG;UNK
     Route: 048
     Dates: start: 20150917, end: 20150923
  9. MOSAPRIDE CITRATE [Concomitant]
     Active Substance: MOSAPRIDE CITRATE
     Dosage: 15MG;UNK
     Route: 048
     Dates: start: 20150922, end: 20150923

REACTIONS (2)
  - Pyelonephritis [Recovered/Resolved]
  - Pyrexia [Recovered/Resolved]

NARRATIVE: CASE EVENT DATE: 20150926
